FAERS Safety Report 13216277 (Version 1)
Quarter: 2017Q1

REPORT INFORMATION
  Report Type: Spontaneous
  Country: US (occurrence: US)
  Receive Date: 20170210
  Receipt Date: 20170210
  Transmission Date: 20170428
  Serious: No
  Sender: FDA-Public Use
  Company Number: US-CELGENEUS-USA-2017020749

PATIENT
  Sex: Male

DRUGS (2)
  1. THALOMID [Suspect]
     Active Substance: THALIDOMIDE
     Indication: CROHN^S DISEASE
     Dosage: 200 MILLIGRAM
     Route: 048
     Dates: start: 201604
  2. THALOMID [Suspect]
     Active Substance: THALIDOMIDE
     Indication: PYODERMA GANGRENOSUM

REACTIONS (2)
  - Feeling abnormal [Unknown]
  - Fatigue [Unknown]
